FAERS Safety Report 6025760-8 (Version None)
Quarter: 2008Q4

REPORT INFORMATION
  Report Type: 
  Country: None (occurrence: None)
  Receive Date: 20081224
  Receipt Date: 20081210
  Transmission Date: 20090506
  Serious: Yes (Hospitalization)
  Sender: FDA-Public Use
  Company Number: KV200801083

PATIENT
  Age: 73 Year
  Sex: Female
  Weight: 67.1 kg

DRUGS (7)
  1. ISOSORBIDE MONONITRATE [Suspect]
     Indication: ARRHYTHMIA
     Dosage: 15 MG, ( HALF TABLET QD), ORAL
     Route: 048
     Dates: end: 19800701
  2. TOPROL-XL [Concomitant]
  3. ACCURETIC [Concomitant]
  4. SYNTHROID (LEVOTHYROXINE SODIUM), 50 MG [Concomitant]
  5. VYTORIN (EZETIMIBE, SIMVASTATIN), 10 MG [Concomitant]
  6. COUMADIN /00014802/ (WARFARIN SODIUM), 5 MG [Concomitant]
  7. FLECAINADE, 50 MG [Concomitant]

REACTIONS (2)
  - HEART RATE INCREASED [None]
  - PRODUCT QUALITY ISSUE [None]
